FAERS Safety Report 4757045-1 (Version None)
Quarter: 2005Q3

REPORT INFORMATION
  Report Type: 
  Country: None (occurrence: None)
  Receive Date: 20050831
  Receipt Date: 20050706
  Transmission Date: 20060218
  Serious: Yes (Hospitalization)
  Sender: FDA-Public Use
  Company Number: US-BOEHRINGER INGELHEIM PHARMACEUTICALS, INC.-2005-BP-11336BP

PATIENT
  Age: 76 Year
  Sex: Female

DRUGS (1)
  1. CATAPRES-TTS-1 [Suspect]
     Route: 061

REACTIONS (1)
  - HOSPITALISATION [None]
